FAERS Safety Report 4329617-X (Version None)
Quarter: 2004Q2

REPORT INFORMATION
  Report Type: 
  Country: None (occurrence: None)
  Receive Date: 20040401
  Receipt Date: 20040323
  Transmission Date: 20050107
  Serious: Yes (Hospitalization)
  Sender: FDA-Public Use
  Company Number: SE-ROCHE-363250

PATIENT
  Age: 23 Year
  Sex: Female

DRUGS (2)
  1. IKTORIVIL [Suspect]
     Indication: DEPRESSION
     Route: 065
     Dates: start: 20031205, end: 20031206
  2. NARDIL [Suspect]
     Indication: DEPRESSION
     Dosage: DOSAGE REGIMEN PROVIDED AS '1MG 1 - 6'.
     Route: 065
     Dates: start: 20031107, end: 20031209

REACTIONS (5)
  - BLOOD PRESSURE DECREASED [None]
  - FALL [None]
  - HEART RATE DECREASED [None]
  - SYNCOPE [None]
  - VERTIGO [None]
